FAERS Safety Report 24306383 (Version 5)
Quarter: 2025Q1

REPORT INFORMATION
  Report Type: Spontaneous
  Country: US (occurrence: US)
  Receive Date: 20240911
  Receipt Date: 20250324
  Transmission Date: 20250409
  Serious: No
  Sender: SANOFI AVENTIS
  Company Number: US-SA-2024SA260377

PATIENT
  Age: 63 Year
  Sex: Female

DRUGS (5)
  1. DUPIXENT [Suspect]
     Active Substance: DUPILUMAB
     Indication: Asthma
     Route: 058
     Dates: start: 20240306, end: 20240306
  2. DUPIXENT [Suspect]
     Active Substance: DUPILUMAB
     Dosage: 300 MG, QOW
     Route: 058
     Dates: start: 202403
  3. ISOSORBIDE MONONITRATE [Concomitant]
     Active Substance: ISOSORBIDE MONONITRATE
  4. RANOLAZINE [Concomitant]
     Active Substance: RANOLAZINE
  5. ORENCIA [Concomitant]
     Active Substance: ABATACEPT

REACTIONS (14)
  - Chest pain [Recovering/Resolving]
  - SARS-CoV-2 test positive [Unknown]
  - Headache [Not Recovered/Not Resolved]
  - Cough [Not Recovered/Not Resolved]
  - Rhinorrhoea [Not Recovered/Not Resolved]
  - Respiratory tract congestion [Not Recovered/Not Resolved]
  - Urinary tract infection [Not Recovered/Not Resolved]
  - Polyuria [Recovering/Resolving]
  - Dysuria [Recovering/Resolving]
  - Oropharyngeal pain [Unknown]
  - Pyrexia [Recovering/Resolving]
  - Viral infection [Recovering/Resolving]
  - Rash [Recovered/Resolved]
  - Inappropriate schedule of product administration [Unknown]

NARRATIVE: CASE EVENT DATE: 20240101
